FAERS Safety Report 18994847 (Version 1)
Quarter: 2021Q1

REPORT INFORMATION
  Report Type: Spontaneous
  Country: US (occurrence: US)
  Receive Date: 20210310
  Receipt Date: 20210310
  Transmission Date: 20210420
  Serious: Yes (Other)
  Sender: FDA-Public Use
  Company Number: US-GILEAD-2021-0520628

PATIENT
  Age: 52 Year
  Sex: Male

DRUGS (3)
  1. BIKTARVY [Suspect]
     Active Substance: BICTEGRAVIR SODIUM\EMTRICITABINE\TENOFOVIR ALAFENAMIDE FUMARATE
     Indication: HIV INFECTION
     Dosage: UNK
     Route: 065
     Dates: start: 202006
  2. COVID SHOT [Concomitant]
     Dosage: UNK
     Dates: start: 20210219, end: 20210219
  3. TIVICAY [Concomitant]
     Active Substance: DOLUTEGRAVIR SODIUM
     Dosage: UNK

REACTIONS (12)
  - Faeces discoloured [Not Recovered/Not Resolved]
  - Headache [Recovered/Resolved]
  - Abdominal distension [Not Recovered/Not Resolved]
  - Sleep disorder [Not Recovered/Not Resolved]
  - Drug resistance [Not Recovered/Not Resolved]
  - Diarrhoea [Not Recovered/Not Resolved]
  - Flatulence [Not Recovered/Not Resolved]
  - Drug ineffective [Not Recovered/Not Resolved]
  - Hepatic enzyme increased [Recovering/Resolving]
  - Blood HIV RNA increased [Recovered/Resolved]
  - Fatigue [Unknown]
  - Infrequent bowel movements [Recovered/Resolved]

NARRATIVE: CASE EVENT DATE: 202006
